FAERS Safety Report 5962724-4 (Version None)
Quarter: 2008Q4

REPORT INFORMATION
  Report Type: 
  Country: None (occurrence: None)
  Receive Date: 20081124
  Receipt Date: 20081117
  Transmission Date: 20090506
  Serious: Yes (Hospitalization, Other)
  Sender: FDA-Public Use
  Company Number: NL-JNJFOC-20081104298

PATIENT
  Sex: Female
  Weight: 90 kg

DRUGS (2)
  1. RISPERDAL [Suspect]
     Indication: PSYCHOTIC DISORDER
     Route: 065
  2. CLOMIPRAMINE HCL [Suspect]
     Indication: PSYCHOTIC DISORDER
     Route: 065

REACTIONS (1)
  - DIABETIC KETOACIDOSIS [None]
